FAERS Safety Report 7757798-4 (Version None)
Quarter: 2011Q3

REPORT INFORMATION
  Report Type: 
  Country: None (occurrence: None)
  Receive Date: 20110918
  Receipt Date: 20110906
  Transmission Date: 20111222
  Serious: Yes (Other)
  Sender: FDA-Public Use
  Company Number: US-ASTRAZENECA-2011SE53315

PATIENT
  Age: 94 Year
  Sex: Female
  Weight: 77.1 kg

DRUGS (2)
  1. SEROQUEL [Suspect]
     Indication: DEMENTIA
     Dosage: TAKING AT 5 AM AND AT 8 PM
     Route: 048
  2. CELEXA [Concomitant]
     Indication: DEPRESSION

REACTIONS (7)
  - HIP FRACTURE [None]
  - AGGRESSION [None]
  - PSYCHIATRIC SYMPTOM [None]
  - DEPRESSION [None]
  - PARANOIA [None]
  - FEMUR FRACTURE [None]
  - OFF LABEL USE [None]
